FAERS Safety Report 6301600-4 (Version None)
Quarter: 2009Q3

REPORT INFORMATION
  Report Type: 
  Country: None (occurrence: None)
  Receive Date: 20090807
  Receipt Date: 20090804
  Transmission Date: 20100115
  Serious: Yes (Hospitalization)
  Sender: FDA-Public Use
  Company Number: ES-GILEAD-E2B_00000406

PATIENT
  Age: 66 Year
  Sex: Female
  Weight: 45 kg

DRUGS (5)
  1. TRUVADA [Suspect]
     Indication: HIV INFECTION
     Route: 048
     Dates: start: 20080602
  2. SUSTIVA [Suspect]
     Indication: HIV INFECTION
     Route: 048
     Dates: start: 20080602, end: 20080905
  3. MYAMBUTOL [Suspect]
     Indication: TUBERCULOSIS
     Route: 048
     Dates: start: 20080716
  4. PYRAZINAMIDE [Suspect]
     Indication: TUBERCULOSIS
     Route: 048
     Dates: start: 20080716
  5. ANSATIPIN [Suspect]
     Indication: TUBERCULOSIS
     Route: 048
     Dates: start: 20080716

REACTIONS (2)
  - HEPATITIS TOXIC [None]
  - LIVER DISORDER [None]
